FAERS Safety Report 4457117-5 (Version None)
Quarter: 2004Q3

REPORT INFORMATION
  Report Type: 
  Country: None (occurrence: None)
  Receive Date: 20040923
  Receipt Date: 20040913
  Transmission Date: 20050211
  Serious: Yes (Other)
  Sender: FDA-Public Use
  Company Number: US-ABBOTT-04P-163-0272996-00

PATIENT
  Sex: Male
  Weight: 86.26 kg

DRUGS (14)
  1. HUMIRA [Suspect]
     Indication: RHEUMATOID ARTHRITIS
     Route: 058
     Dates: start: 20040501
  2. ENALAPRIL [Concomitant]
     Indication: BLOOD PRESSURE
     Route: 048
     Dates: start: 20020101, end: 20040903
  3. ENALAPRIL [Concomitant]
     Route: 048
     Dates: start: 20040904, end: 20040906
  4. ENALAPRIL [Concomitant]
     Route: 048
     Dates: start: 20040907
  5. ATENOLOL [Concomitant]
     Indication: BLOOD PRESSURE
     Route: 048
     Dates: start: 20020101
  6. HYDROCHLOROTHIAZIDE [Concomitant]
     Indication: BLOOD PRESSURE
     Route: 048
     Dates: start: 20040904, end: 20040906
  7. PREDNISONE [Concomitant]
     Indication: RHEUMATOID ARTHRITIS
     Route: 048
  8. CELECOXIB [Concomitant]
     Indication: RHEUMATOID ARTHRITIS
     Route: 048
  9. SULFASALAZINE [Concomitant]
     Indication: RHEUMATOID ARTHRITIS
     Route: 048
  10. ESOMEPRAZOLE [Concomitant]
     Indication: GASTRIC DISORDER
     Route: 048
     Dates: start: 20030101
  11. PROPACET 100 [Concomitant]
     Indication: PAIN
     Route: 048
  12. GABAPENTIN [Concomitant]
     Indication: DRUG USE FOR UNKNOWN INDICATION
     Route: 048
  13. METOCLOPRAMIDE [Concomitant]
     Indication: DRUG USE FOR UNKNOWN INDICATION
     Route: 048
  14. INSULIN [Concomitant]
     Indication: DIABETES MELLITUS INSULIN-DEPENDENT
     Route: 050
     Dates: start: 19890101

REACTIONS (7)
  - BLOOD CHLORIDE DECREASED [None]
  - BLOOD POTASSIUM INCREASED [None]
  - BLOOD PRESSURE INCREASED [None]
  - BLOOD SODIUM DECREASED [None]
  - LOSS OF CONSCIOUSNESS [None]
  - SKIN LACERATION [None]
  - VOMITING [None]
